FAERS Safety Report 8378894-7 (Version None)
Quarter: 2012Q2

REPORT INFORMATION
  Report Type: 
  Country: None (occurrence: None)
  Receive Date: 20120522
  Receipt Date: 20120522
  Transmission Date: 20120825
  Serious: Yes (Hospitalization)
  Sender: FDA-Public Use
  Company Number: None

PATIENT
  Sex: Female

DRUGS (1)
  1. HUMIRA [Suspect]
     Indication: RHEUMATOID ARTHRITIS
     Dosage: 40 MG EVERY OTHER WEEK SQ. ON 4/17/12 CHANGED 2 EVERY WEEK
     Dates: start: 20120119, end: 20120430

REACTIONS (5)
  - ASTHENIA [None]
  - RENAL FAILURE [None]
  - MALAISE [None]
  - RENAL DISORDER [None]
  - HYPERHIDROSIS [None]
